FAERS Safety Report 10557894 (Version 1)
Quarter: 2014Q4

REPORT INFORMATION
  Report Type: Spontaneous
  Country: SE (occurrence: None)
  Receive Date: 20141029
  Receipt Date: 20141029
  Transmission Date: 20150529
  Serious: Yes (Other)
  Sender: FDA-Public Use
  Company Number: FK201404500

PATIENT
  Sex: Male

DRUGS (8)
  1. ETOPOSIDE (MANUFACTURER UNKNOWN) (ETOPOSIDE) (ETOPOSIDE) [Suspect]
     Active Substance: ETOPOSIDE
     Indication: VANISHING BILE DUCT SYNDROME
     Dates: start: 200804
  2. CYCLOPHOSPHAMIDE (CYCLOPHOSPHAMIDE) (CYCLOPHOSPHAMIDE) [Suspect]
     Active Substance: CYCLOPHOSPHAMIDE
     Indication: VANISHING BILE DUCT SYNDROME
     Dates: start: 200804
  3. VINCRISTINE (VINCRISTINE) (VINCRISTINE) [Suspect]
     Active Substance: VINCRISTINE
     Dates: start: 200804
  4. PROCARBAZINE [Suspect]
     Active Substance: PROCARBAZINE
     Dates: start: 200804
  5. BLEOMYCIN [Suspect]
     Active Substance: BLEOMYCIN SULFATE
     Indication: VANISHING BILE DUCT SYNDROME
     Dosage: STOPPED
     Dates: start: 200804
  6. DOXORUBICIN (DOXORUBICIN) (DOXORUBICIN) [Suspect]
     Active Substance: DOXORUBICIN
     Indication: VANISHING BILE DUCT SYNDROME
     Dates: start: 200804
  7. PREDNISONE (PREDNISONE) (PREDNISONE) [Suspect]
     Active Substance: PREDNISONE
     Indication: VANISHING BILE DUCT SYNDROME
     Dates: start: 200804
  8. RITUXIMAB (RITUXIMAB) [Suspect]
     Active Substance: RITUXIMAB
     Indication: VANISHING BILE DUCT SYNDROME
     Dosage: 4 IN 1 WK
     Dates: start: 200804

REACTIONS (1)
  - Neutropenic sepsis [None]
